FAERS Safety Report 13343081 (Version 2)
Quarter: 2017Q1

REPORT INFORMATION
  Report Type: Spontaneous
  Country: US (occurrence: US)
  Receive Date: 20170316
  Receipt Date: 20170317
  Transmission Date: 20170428
  Serious: Yes (Other)
  Sender: FDA-Public Use
  Company Number: US-ASTRAZENECA-2017SE27515

PATIENT
  Age: 851 Month
  Sex: Female
  Weight: 83 kg

DRUGS (6)
  1. DALIRESP [Suspect]
     Active Substance: ROFLUMILAST
     Indication: DYSPNOEA
     Route: 048
     Dates: start: 201302
  2. DALIRESP [Suspect]
     Active Substance: ROFLUMILAST
     Indication: SMALL CELL LUNG CANCER
     Route: 048
     Dates: start: 201302
  3. ALBUTEROL BREATHING TREATMENTS [Concomitant]
     Indication: DYSPNOEA
     Dosage: EVERY 12 HOURS
     Route: 055
     Dates: start: 2013
  4. PREDNISONE. [Concomitant]
     Active Substance: PREDNISONE
     Indication: DYSPNOEA
     Dosage: 10-20 MG DAILY
     Route: 048
  5. OXYGEN. [Concomitant]
     Active Substance: OXYGEN
     Indication: DYSPNOEA
     Dosage: 3 LPM CONTINUOUS
     Route: 055
     Dates: start: 2013
  6. DALIRESP [Suspect]
     Active Substance: ROFLUMILAST
     Indication: CHRONIC OBSTRUCTIVE PULMONARY DISEASE
     Route: 048
     Dates: start: 201302

REACTIONS (8)
  - Dyspnoea at rest [Unknown]
  - Lung carcinoma cell type unspecified recurrent [Unknown]
  - Off label use [Not Recovered/Not Resolved]
  - Lung disorder [Unknown]
  - Cough [Unknown]
  - Product use issue [Not Recovered/Not Resolved]
  - Dyspnoea [Unknown]
  - Orthopnoea [Unknown]

NARRATIVE: CASE EVENT DATE: 201302
